FAERS Safety Report 12351371 (Version 1)
Quarter: 2016Q2

REPORT INFORMATION
  Report Type: Spontaneous
  Country: US (occurrence: None)
  Receive Date: 20160509
  Receipt Date: 20160509
  Transmission Date: 20160815
  Serious: No
  Sender: FDA-Public Use
  Company Number: None

PATIENT
  Age: 11 Day
  Sex: Female
  Weight: .7 kg

DRUGS (2)
  1. ACETAMINOPHEN, 10MG/ML [Suspect]
     Active Substance: ACETAMINOPHEN
     Indication: PATENT DUCTUS ARTERIOSUS
     Dosage: 15 MG/KG QID INTRAVENOUS (NOT OTHERWISE SPECIFIED)
     Route: 042
     Dates: start: 20160430, end: 20160504
  2. ACETAMINOPHEN, 10MG/ML [Suspect]
     Active Substance: ACETAMINOPHEN
     Indication: RENAL FAILURE
     Dosage: 15 MG/KG QID INTRAVENOUS (NOT OTHERWISE SPECIFIED)
     Route: 042
     Dates: start: 20160430, end: 20160504

REACTIONS (1)
  - Transaminases increased [None]

NARRATIVE: CASE EVENT DATE: 20160504
